FAERS Safety Report 24360866 (Version 2)
Quarter: 2024Q4

REPORT INFORMATION
  Report Type: Spontaneous
  Country: GB (occurrence: GB)
  Receive Date: 20240925
  Receipt Date: 20241009
  Transmission Date: 20250115
  Serious: Yes (Death, Life-Threatening, Other)
  Sender: AUROBINDO
  Company Number: GB-MHRA-MED-202409110858313950-DFTYP

PATIENT
  Sex: Female
  Weight: 91 kg

DRUGS (14)
  1. CARBOPLATIN [Suspect]
     Active Substance: CARBOPLATIN
     Indication: Non-small cell lung cancer stage III
     Dosage: 400 MILLIGRAM, CYCLICAL (400MG - 3 CYCLES COMPLETED)
     Route: 065
     Dates: start: 20240521, end: 20240711
  2. GEMCITABINE [Suspect]
     Active Substance: GEMCITABINE
     Indication: Non-small cell lung cancer stage III
     Dosage: 1520 MILLIGRAM, CYCLICAL (~1520MG - 3 CYCLES COMPLETED)
     Route: 065
     Dates: start: 20240521, end: 20240718
  3. DEXAMETHASONE [Concomitant]
     Active Substance: DEXAMETHASONE
     Indication: Chemotherapy side effect prophylaxis
     Dosage: UNK
     Route: 065
     Dates: start: 20240521
  4. ONDANSETRON [Concomitant]
     Active Substance: ONDANSETRON
     Indication: Chemotherapy side effect prophylaxis
     Dosage: UNK
     Route: 065
     Dates: start: 20240521
  5. METOCLOPRAMIDE [Concomitant]
     Active Substance: METOCLOPRAMIDE
     Indication: Nausea
     Dosage: UNK
     Route: 065
     Dates: start: 20240521
  6. ATORVASTATIN [Concomitant]
     Active Substance: ATORVASTATIN
     Indication: Hypercholesterolaemia
     Dosage: UNK
     Route: 065
  7. BISOPROLOL [Concomitant]
     Active Substance: BISOPROLOL\BISOPROLOL FUMARATE
     Indication: Product used for unknown indication
     Dosage: UNK
     Route: 065
  8. LANSOPRAZOLE [Concomitant]
     Active Substance: LANSOPRAZOLE
     Indication: Product used for unknown indication
     Dosage: UNK
     Route: 065
  9. LEVOTHYROXINE [Concomitant]
     Active Substance: LEVOTHYROXINE
     Indication: Product used for unknown indication
     Dosage: UNK
     Route: 065
  10. LERCANIDIPINE [Concomitant]
     Active Substance: LERCANIDIPINE
     Indication: Product used for unknown indication
     Dosage: UNK
     Route: 065
  11. BECLOMETHASONE DIPROPIONATE\FORMOTEROL FUMARATE\GLYCOPYRROLATE [Concomitant]
     Active Substance: BECLOMETHASONE DIPROPIONATE\FORMOTEROL FUMARATE\GLYCOPYRROLATE
     Indication: Product used for unknown indication
     Dosage: UNK
     Route: 065
  12. RAMIPRIL [Concomitant]
     Active Substance: RAMIPRIL
     Indication: Product used for unknown indication
     Dosage: UNK
     Route: 065
  13. SERTRALINE [Concomitant]
     Active Substance: SERTRALINE HYDROCHLORIDE
     Indication: Product used for unknown indication
     Dosage: UNK
     Route: 065
  14. ALBUTEROL [Concomitant]
     Active Substance: ALBUTEROL
     Indication: Product used for unknown indication
     Dosage: UNK
     Route: 065

REACTIONS (2)
  - Thrombosis [Fatal]
  - Abdominal pain [Unknown]

NARRATIVE: CASE EVENT DATE: 20240720
